FAERS Safety Report 4981710-4 (Version None)
Quarter: 2006Q2

REPORT INFORMATION
  Report Type: 
  Country: None (occurrence: None)
  Receive Date: 20060420
  Receipt Date: 20060420
  Transmission Date: 20061013
  Serious: Yes (Life-Threatening, Disabling)
  Sender: FDA-Public Use
  Company Number: None

PATIENT
  Age: 90 Year
  Sex: Male
  Weight: 55.7924 kg

DRUGS (2)
  1. EPIC XYLITOL TOOTHPASTE [Suspect]
     Indication: DENTAL DISORDER PROPHYLAXIS
     Dosage: TWICE DAILY
  2. EPIC XYLITOL OTHER PRODUCTS [Suspect]
     Indication: DENTAL DISORDER PROPHYLAXIS
     Dosage: TWICE DAILY

REACTIONS (10)
  - ASTHENIA [None]
  - COUGH [None]
  - DIARRHOEA [None]
  - DRUG TOXICITY [None]
  - INCREASED UPPER AIRWAY SECRETION [None]
  - LISTLESS [None]
  - NASOPHARYNGEAL DISORDER [None]
  - ORAL TOXICITY [None]
  - PULMONARY TOXICITY [None]
  - SINUS DISORDER [None]
